FAERS Safety Report 24358384 (Version 1)
Quarter: 2024Q3

REPORT INFORMATION
  Report Type: Spontaneous
  Country: US (occurrence: US)
  Receive Date: 20240924
  Receipt Date: 20240924
  Transmission Date: 20241017
  Serious: Yes (Other)
  Sender: PFIZER
  Company Number: US-PFIZER INC-202400259955

PATIENT
  Age: 76 Year
  Sex: Female
  Weight: 90.249 kg

DRUGS (3)
  1. ALDACTONE [Suspect]
     Active Substance: SPIRONOLACTONE
     Indication: Cardiac failure chronic
     Dosage: 25 MG, 2X/DAY
     Route: 048
  2. CRESTOR [Suspect]
     Active Substance: ROSUVASTATIN CALCIUM
     Dosage: 40 MG, 1X/DAY, NIGHTLY
     Route: 048
  3. NITROSTAT [Suspect]
     Active Substance: NITROGLYCERIN
     Indication: Chest pain
     Dosage: 0.4 MG, AS NEEDED FOR CHEST PAIN X 3 DOSES, THEN CALL EMS
     Route: 060

REACTIONS (2)
  - Cardiac amyloidosis [Unknown]
  - Weight decreased [Unknown]
